FAERS Safety Report 8701993 (Version 5)
Quarter: 2012Q4

REPORT INFORMATION
  Report Type: 
  Country: GB (occurrence: GB)
  Receive Date: 20120803
  Receipt Date: 20121129
  Transmission Date: 20130627
  Serious: Yes (Other)
  Sender: FDA-Public Use
  Company Number: GB-JNJFOC-20120705919

PATIENT
  Sex: Male

DRUGS (2)
  1. ROGAINE EXTRA STRENGTH [Suspect]
     Route: 065
  2. ROGAINE EXTRA STRENGTH [Suspect]
     Indication: ALOPECIA
     Route: 065
     Dates: end: 2011

REACTIONS (18)
  - Suicidal ideation [Recovering/Resolving]
  - Depression [Recovering/Resolving]
  - Skin injury [Unknown]
  - Hair texture abnormal [Recovering/Resolving]
  - Anxiety [Recovering/Resolving]
  - Hypothalamo-pituitary disorder [Recovering/Resolving]
  - Erectile dysfunction [Recovering/Resolving]
  - Skin disorder [Recovering/Resolving]
  - Skin discolouration [Not Recovered/Not Resolved]
  - Hair growth abnormal [Recovering/Resolving]
  - Alopecia [Not Recovered/Not Resolved]
  - Seborrhoea [Recovering/Resolving]
  - Rash macular [Recovering/Resolving]
  - Blood iron decreased [Recovering/Resolving]
  - Quality of life decreased [Recovering/Resolving]
  - Device failure [Recovering/Resolving]
  - Skin burning sensation [Recovering/Resolving]
  - Drug ineffective [Unknown]
